FAERS Safety Report 4630705-9 (Version None)
Quarter: 2005Q2

REPORT INFORMATION
  Report Type: 
  Country: None (occurrence: None)
  Receive Date: 20050406
  Receipt Date: 20050317
  Transmission Date: 20051028
  Serious: Yes (Hospitalization)
  Sender: FDA-Public Use
  Company Number: WAES 0503CHE00019

PATIENT
  Age: 48 Year
  Sex: Male

DRUGS (3)
  1. DECADRON [Suspect]
     Dosage: 2 MG/DAILY; 4 MG/DAILY
     Dates: start: 20041114, end: 20050215
  2. [COMPOSITION UNSPECIFIED] [Concomitant]
  3. TEMOZOLOMIDE [Concomitant]

REACTIONS (6)
  - BLOOD OSMOLARITY INCREASED [None]
  - BLOOD POTASSIUM DECREASED [None]
  - BLOOD SODIUM DECREASED [None]
  - DEPRESSED LEVEL OF CONSCIOUSNESS [None]
  - HYPERGLYCAEMIA [None]
  - LETHARGY [None]
